FAERS Safety Report 8768171 (Version 1)
Quarter: 2012Q4

REPORT INFORMATION
  Report Type: 
  Country: US (occurrence: US)
  Receive Date: 20120905
  Receipt Date: 20120905
  Transmission Date: 20130627
  Serious: Yes (Hospitalization)
  Sender: FDA-Public Use
  Company Number: US-GLAXOSMITHKLINE-A0992021A

PATIENT
  Age: 56 Year
  Sex: Male

DRUGS (2)
  1. ADVAIR [Suspect]
     Indication: DYSPNOEA
     Dosage: 1PUFF Twice per day
     Route: 055
  2. NO CONCURRENT MEDICATIONS [Concomitant]

REACTIONS (4)
  - Myocardial infarction [Recovering/Resolving]
  - Heart rate increased [Recovering/Resolving]
  - Dyspnoea [Recovering/Resolving]
  - Dyspnoea exertional [Recovering/Resolving]
